FAERS Safety Report 10403637 (Version 3)
Quarter: 2014Q4

REPORT INFORMATION
  Report Type: Spontaneous
  Country: IT (occurrence: IT)
  Receive Date: 20140822
  Receipt Date: 20141217
  Transmission Date: 20150528
  Serious: Yes (Hospitalization)
  Sender: FDA-Public Use
  Company Number: IT-PFIZER INC-2014234925

PATIENT
  Age: 59 Year
  Sex: Female

DRUGS (14)
  1. DILATREND [Suspect]
     Active Substance: CARVEDILOL
     Indication: HYPERTENSION
     Dosage: 25 MG, UNK
     Route: 048
     Dates: start: 2009, end: 201407
  2. PARACODINA [Suspect]
     Active Substance: ASPIRIN\CAFFEINE\DIHYDROCODEINE BITARTRATE
     Dosage: 40 GTT, SINGLE
     Route: 048
     Dates: start: 20140728, end: 20140728
  3. FEMARA [Suspect]
     Active Substance: LETROZOLE
     Indication: BREAST CANCER
     Dosage: 2.5 MG, UNK
     Route: 048
     Dates: start: 2013, end: 201407
  4. DIBASE [Suspect]
     Active Substance: CHOLECALCIFEROL
     Dosage: 20 GTT, UNK
     Route: 048
     Dates: end: 201407
  5. FEMARA [Suspect]
     Active Substance: LETROZOLE
     Dosage: 5 MG, SINGLE
     Route: 048
     Dates: start: 20140728, end: 20140728
  6. LOSAPREX [Suspect]
     Active Substance: LOSARTAN POTASSIUM
     Dosage: 100 MG, SINGLE
     Route: 048
     Dates: start: 20140728, end: 20140728
  7. DIBASE [Suspect]
     Active Substance: CHOLECALCIFEROL
     Dosage: 40 GTT, SINGLE
     Route: 048
     Dates: start: 20140728, end: 20140728
  8. XANAX [Suspect]
     Active Substance: ALPRAZOLAM
     Indication: ANXIETY
     Dosage: 0.5 MG, UNK
     Route: 048
     Dates: start: 2013, end: 201407
  9. DILATREND [Suspect]
     Active Substance: CARVEDILOL
     Dosage: 50 MG, SINGLE
     Route: 048
     Dates: start: 20140728, end: 20140728
  10. LOSAPREX [Suspect]
     Active Substance: LOSARTAN POTASSIUM
     Indication: HYPERTENSION
     Dosage: 50 MG, UNK
     Route: 048
     Dates: start: 2009, end: 201407
  11. XANAX [Suspect]
     Active Substance: ALPRAZOLAM
     Dosage: 1 MG, SINGLE
     Route: 048
     Dates: start: 20140728, end: 20140728
  12. DELTACORTENE [Suspect]
     Active Substance: PREDNISONE
     Dosage: 25 MG, UNK
     Route: 048
     Dates: end: 201407
  13. DELTACORTENE [Suspect]
     Active Substance: PREDNISONE
     Dosage: 50 MG, SINGLE
     Route: 048
     Dates: start: 20140728, end: 20140728
  14. PARACODINA [Suspect]
     Active Substance: ASPIRIN\CAFFEINE\DIHYDROCODEINE BITARTRATE
     Dosage: 20 GTT, UNK
     Route: 048
     Dates: end: 201407

REACTIONS (2)
  - Sopor [Recovered/Resolved]
  - Drug abuse [Recovered/Resolved]

NARRATIVE: CASE EVENT DATE: 20140728
